FAERS Safety Report 13651296 (Version 1)
Quarter: 2017Q2

REPORT INFORMATION
  Report Type: Spontaneous
  Country: CH (occurrence: CH)
  Receive Date: 20170614
  Receipt Date: 20170614
  Transmission Date: 20170830
  Serious: Yes (Hospitalization)
  Sender: FDA-Public Use
  Company Number: CH-TEVA-775247ISR

PATIENT
  Age: 83 Year
  Sex: Female

DRUGS (9)
  1. TRIATEC 5 MG TABLETTEN [Concomitant]
     Active Substance: RAMIPRIL
     Route: 048
  2. NEURONTIN 300 MG KAPSELN [Concomitant]
     Route: 048
  3. CO-AMOXI [Suspect]
     Active Substance: AMOXICILLIN\CLAVULANATE POTASSIUM
     Route: 041
     Dates: start: 20170429, end: 20170502
  4. CLEXANE [Concomitant]
     Active Substance: ENOXAPARIN SODIUM
     Route: 058
  5. DIGOXIN. [Concomitant]
     Active Substance: DIGOXIN
     Route: 048
  6. TRAMADOL MEPHA [Concomitant]
     Active Substance: TRAMADOL HYDROCHLORIDE
     Route: 048
     Dates: end: 20170430
  7. EUTHYROX 50 TABLETTEN [Concomitant]
     Route: 048
  8. DAFALGAN [Concomitant]
     Active Substance: ACETAMINOPHEN
     Route: 048
  9. TORASEMID SANDOZ ECO [Concomitant]
     Active Substance: TORSEMIDE
     Route: 048

REACTIONS (4)
  - Hypersensitivity [Recovering/Resolving]
  - Rash maculo-papular [Recovering/Resolving]
  - Drug cross-reactivity [Unknown]
  - Skin reaction [Recovering/Resolving]

NARRATIVE: CASE EVENT DATE: 20170502
